FAERS Safety Report 4681450-5 (Version None)
Quarter: 2005Q2

REPORT INFORMATION
  Report Type: 
  Country: None (occurrence: None)
  Receive Date: 20050603
  Receipt Date: 20050519
  Transmission Date: 20051028
  Serious: Yes (Other)
  Sender: FDA-Public Use
  Company Number: SEWYE683720MAY05

PATIENT
  Sex: Male
  Weight: 92 kg

DRUGS (2)
  1. ENBREL [Suspect]
     Indication: PSORIASIS
     Route: 058
     Dates: start: 20050502
  2. METHOTREXATE [Concomitant]
     Route: 048
     Dates: start: 20031107

REACTIONS (3)
  - HAEMATEMESIS [None]
  - HEADACHE [None]
  - MALAISE [None]
